FAERS Safety Report 7710405-9 (Version None)
Quarter: 2011Q3

REPORT INFORMATION
  Report Type: 
  Country: None (occurrence: None)
  Receive Date: 20110825
  Receipt Date: 20110810
  Transmission Date: 20111222
  Serious: Yes (Hospitalization, Other)
  Sender: FDA-Public Use
  Company Number: US-ELI_LILLY_AND_COMPANY-US201011003716

PATIENT
  Sex: Female

DRUGS (8)
  1. EFFEXOR XR [Concomitant]
  2. ENABLEX                            /01760402/ [Concomitant]
  3. TRAZODONE HYDROCHLORIDE [Concomitant]
  4. PLAQUENIL [Concomitant]
  5. FORTEO [Suspect]
     Indication: OSTEOPOROSIS
     Dosage: 20 UG, QD
     Dates: start: 20101105
  6. HYDROCODONE BITARTRATE [Concomitant]
  7. FORTEO [Suspect]
     Dosage: 20 UG, QD
  8. LISINOPRIL [Concomitant]
     Indication: BLOOD PRESSURE

REACTIONS (8)
  - GAIT DISTURBANCE [None]
  - LOSS OF CONSCIOUSNESS [None]
  - TINNITUS [None]
  - UPPER LIMB FRACTURE [None]
  - HAND FRACTURE [None]
  - DRUG INEFFECTIVE [None]
  - FOOT FRACTURE [None]
  - FALL [None]
